FAERS Safety Report 16806902 (Version 5)
Quarter: 2021Q1

REPORT INFORMATION
  Report Type: Spontaneous
  Country: US (occurrence: US)
  Receive Date: 20190913
  Receipt Date: 20210316
  Transmission Date: 20210419
  Serious: Yes (Hospitalization, Other)
  Sender: FDA-Public Use
  Company Number: US-PFIZER INC-2018168246

PATIENT
  Age: 60 Year
  Sex: Female
  Weight: 90.26 kg

DRUGS (3)
  1. LYRICA [Suspect]
     Active Substance: PREGABALIN
     Indication: NERVE INJURY
     Dosage: 50 MG, 2X/DAY  (AT NIGHT BEDTIME)
     Route: 048
     Dates: start: 201601, end: 201706
  2. LYRICA [Suspect]
     Active Substance: PREGABALIN
     Dosage: 50 MG, 1X/DAY [TAKES 1 CAPSULE OF 50MG]
  3. LYRICA [Suspect]
     Active Substance: PREGABALIN
     Indication: NEURALGIA
     Dosage: 50 MG, 2X/DAY [2 CAPSULES TWICE A DAY AM AND NIGHT TIME]
     Route: 048

REACTIONS (2)
  - Spinal cord injury [Unknown]
  - Feeling abnormal [Unknown]
